FAERS Safety Report 16557247 (Version 9)
Quarter: 2019Q4

REPORT INFORMATION
  Report Type: Report from Study
  Country: None (occurrence: ES)
  Receive Date: 20190711
  Receipt Date: 20191116
  Transmission Date: 20200122
  Serious: Yes (Other)
  Sender: FDA-Public Use
  Company Number: ES-ABBVIE-19K-144-2845516-00

PATIENT
  Age: 59 Year
  Sex: Male

DRUGS (5)
  1. SINEMET [Concomitant]
     Active Substance: CARBIDOPA\LEVODOPA
     Indication: PARKINSON^S DISEASE
     Dosage: 6 CAPSULES 200/50 IN TOTAL
     Route: 048
     Dates: start: 20190706, end: 20191011
  2. DUODOPA [Suspect]
     Active Substance: CARBIDOPA\LEVODOPA
     Route: 050
     Dates: start: 20191011, end: 2019
  3. ASCORBIC ACID. [Concomitant]
     Active Substance: ASCORBIC ACID
     Indication: PARKINSON^S DISEASE
     Dosage: 1G IN TOTAL
     Route: 048
     Dates: start: 20190706, end: 20191011
  4. DUODOPA [Suspect]
     Active Substance: CARBIDOPA\LEVODOPA
     Indication: PARKINSON^S DISEASE
     Route: 050
     Dates: start: 20160121
  5. DUODOPA [Suspect]
     Active Substance: CARBIDOPA\LEVODOPA
     Route: 050
     Dates: end: 20190706

REACTIONS (6)
  - Embedded device [Recovered/Resolved]
  - Dyskinesia [Not Recovered/Not Resolved]
  - Device dislocation [Recovered/Resolved]
  - Discoloured vomit [Recovered/Resolved]
  - Device deployment issue [Unknown]
  - Device issue [Recovered/Resolved]

NARRATIVE: CASE EVENT DATE: 2019
